FAERS Safety Report 20547587 (Version 1)
Quarter: 2022Q1

REPORT INFORMATION
  Report Type: Report from Study
  Country: CH (occurrence: CH)
  Receive Date: 20220303
  Receipt Date: 20220303
  Transmission Date: 20220423
  Serious: Yes (Other)
  Sender: FDA-Public Use
  Company Number: CH-TEVA-751064ROM

PATIENT

DRUGS (5)
  1. DEXAMETHASONE [Suspect]
     Active Substance: DEXAMETHASONE
     Indication: Radicular pain
     Dosage: 4MG
     Route: 008
  2. BUPIVACAINE HYDROCHLORIDE [Suspect]
     Active Substance: BUPIVACAINE HYDROCHLORIDE
     Indication: Radicular pain
     Dosage: 1ML OF 0.5% BUPIVACAINE
     Route: 008
  3. LIDOCAIN STREULI [Concomitant]
     Indication: Local anaesthesia
     Dosage: 1% LIDOCAINE
     Route: 065
  4. IOPAMIRO [Concomitant]
     Active Substance: IOPAMIDOL
     Dosage: 300 MG/ML
     Route: 065
  5. SODIUM CHLORIDE [Concomitant]
     Active Substance: SODIUM CHLORIDE
     Dosage: 1:3
     Route: 065

REACTIONS (1)
  - Syncope [Unknown]
